FAERS Safety Report 5772941-4 (Version None)
Quarter: 2008Q2

REPORT INFORMATION
  Report Type: 
  Country: None (occurrence: None)
  Receive Date: 20080613
  Receipt Date: 20080602
  Transmission Date: 20081010
  Serious: Yes (Disabling)
  Sender: FDA-Public Use
  Company Number: DE-PFIZER INC-2008047128

PATIENT
  Sex: Male

DRUGS (6)
  1. DOXORUBICIN HCL [Suspect]
     Indication: T-CELL LYMPHOMA
     Dosage: DAILY DOSE:99MG
     Route: 042
  2. VINCRISTINE [Suspect]
     Indication: T-CELL LYMPHOMA
     Dosage: DAILY DOSE:2MG
     Route: 042
  3. METHOTREXATE [Suspect]
     Indication: T-CELL LYMPHOMA
     Dosage: DAILY DOSE:15MG
     Route: 037
  4. CYCLOPHOSPHAMIDE [Suspect]
     Indication: T-CELL LYMPHOMA
     Dosage: DAILY DOSE:1490MG
     Route: 042
  5. ETOPOSIDE [Suspect]
     Indication: T-CELL LYMPHOMA
     Dosage: DAILY DOSE:198MG
     Route: 042
  6. PREDNISONE TAB [Concomitant]
     Dosage: DAILY DOSE:100MG
     Route: 048

REACTIONS (2)
  - ARTHROPATHY [None]
  - MUSCLE DISORDER [None]
